FAERS Safety Report 5836783-3 (Version None)
Quarter: 2008Q3

REPORT INFORMATION
  Report Type: 
  Country: None (occurrence: None)
  Receive Date: 20080806
  Receipt Date: 20080806
  Transmission Date: 20090109
  Serious: No
  Sender: FDA-Public Use
  Company Number: None

PATIENT
  Sex: Female
  Weight: 92.9874 kg

DRUGS (2)
  1. LEVAQUIN [Suspect]
     Indication: KIDNEY INFECTION
     Dosage: 10 TABLETS 1 TABLET EVERY DAY PO
     Route: 048
     Dates: start: 20080320, end: 20080330
  2. LEVAQUIN [Suspect]
     Indication: SINUSITIS
     Dosage: 10 TABLETS 1 TABLET EVERY DAY PO
     Route: 048
     Dates: start: 20070116, end: 20070126

REACTIONS (4)
  - ARTHRALGIA [None]
  - DYSSTASIA [None]
  - PAIN IN EXTREMITY [None]
  - TRIGGER FINGER [None]
